FAERS Safety Report 21961184 (Version 1)
Quarter: 2023Q1

REPORT INFORMATION
  Report Type: Spontaneous
  Country: US (occurrence: US)
  Receive Date: 20230207
  Receipt Date: 20230207
  Transmission Date: 20230417
  Serious: Yes (Hospitalization)
  Sender: FDA-Public Use
  Company Number: US-BRISTOL-MYERS SQUIBB COMPANY-2023-017107

PATIENT
  Age: 74 Year
  Sex: Male

DRUGS (4)
  1. IDHIFA [Suspect]
     Active Substance: ENASIDENIB MESYLATE
     Indication: Acute myeloid leukaemia
     Route: 048
  2. IDHIFA [Suspect]
     Active Substance: ENASIDENIB MESYLATE
     Indication: Leukaemia
  3. IDHIFA [Suspect]
     Active Substance: ENASIDENIB MESYLATE
     Indication: Malignant melanoma
  4. XOSPATA [Concomitant]
     Active Substance: GILTERITINIB
     Indication: Product used for unknown indication

REACTIONS (1)
  - Hospitalisation [Unknown]
